FAERS Safety Report 23192794 (Version 2)
Quarter: 2023Q4

REPORT INFORMATION
  Report Type: Spontaneous
  Country: US (occurrence: US)
  Receive Date: 20231116
  Receipt Date: 20231205
  Transmission Date: 20240109
  Serious: No
  Sender: FDA-Public Use
  Company Number: US-SA-SAC20231110001128

PATIENT
  Age: 34 Year
  Sex: Female

DRUGS (1)
  1. DUPIXENT [Suspect]
     Active Substance: DUPILUMAB
     Indication: Eosinophilic oesophagitis
     Dosage: 300 MG, QW
     Route: 058

REACTIONS (6)
  - Urinary tract infection [Unknown]
  - Tinnitus [Unknown]
  - Raynaud^s phenomenon [Unknown]
  - Injection site erythema [Unknown]
  - Injection site pain [Unknown]
  - Arthralgia [Unknown]
